FAERS Safety Report 9393020 (Version 4)
Quarter: 2013Q3

REPORT INFORMATION
  Report Type: Spontaneous
  Country: IT (occurrence: IT)
  Receive Date: 20130710
  Receipt Date: 20130906
  Transmission Date: 20140515
  Serious: Yes (Life-Threatening, Hospitalization, Other)
  Sender: FDA-Public Use
  Company Number: IT-PFIZER INC-2013202245

PATIENT
  Age: 64 Year
  Sex: Female
  Weight: 60 kg

DRUGS (9)
  1. EFEXOR ER [Suspect]
     Dosage: 1762.5 MG, (47 DF OF 37.5 MG)
     Route: 048
     Dates: start: 20130613, end: 20130613
  2. EFEXOR ER [Suspect]
     Dosage: 1050 MG (14 DF OF 75 MG)
     Route: 048
     Dates: start: 20130613, end: 20130613
  3. MIRTAZAPINE [Suspect]
     Dosage: 600 MG, TOTAL
     Route: 048
     Dates: start: 20130613, end: 20130613
  4. ENALAPRIL [Suspect]
     Dosage: 70 MG, TOTAL
     Route: 048
     Dates: start: 20130613, end: 20130613
  5. ELONTRIL [Suspect]
     Dosage: 30 DF, TOTAL
     Route: 048
     Dates: start: 20130613, end: 20130613
  6. ANSIOLIN [Suspect]
     Dosage: 20 DF, TOTAL
     Route: 048
     Dates: start: 20130613, end: 20130613
  7. NOZINAN [Suspect]
     Dosage: 10 DF, TOTAL
     Route: 048
     Dates: start: 20130613, end: 20130613
  8. TOPAMAX [Suspect]
     Dosage: 60 DF, TOTAL
     Route: 048
     Dates: start: 20130613, end: 20130613
  9. SEROQUEL [Suspect]
     Dosage: 60 DF, TOTAL
     Route: 048
     Dates: start: 20130613, end: 20130613

REACTIONS (4)
  - Coma [Recovered/Resolved]
  - Hepatic enzyme increased [Recovered/Resolved]
  - Pain [Recovered/Resolved]
  - Drug abuse [Recovered/Resolved]
